FAERS Safety Report 9648375 (Version 2)
Quarter: 2013Q4

REPORT INFORMATION
  Report Type: Spontaneous
  Country: CA (occurrence: CA)
  Receive Date: 20131028
  Receipt Date: 20131105
  Transmission Date: 20140711
  Serious: Yes (Hospitalization, Other)
  Sender: FDA-Public Use
  Company Number: CA-NOVOPROD-390693

PATIENT
  Age: 53 Year
  Sex: Male
  Weight: 91 kg

DRUGS (12)
  1. LEVEMIR PENFILL [Suspect]
     Indication: PRODUCT USED FOR UNKNOWN INDICATION
     Dosage: UNK
     Route: 065
  2. AVANDAMET [Suspect]
     Indication: PRODUCT USED FOR UNKNOWN INDICATION
     Dosage: UNK
     Route: 065
  3. METOPROLOL [Suspect]
     Indication: PRODUCT USED FOR UNKNOWN INDICATION
     Dosage: UNK
     Route: 065
  4. NEXAVAR [Suspect]
     Indication: PRODUCT USED FOR UNKNOWN INDICATION
     Dosage: 400 MG, BID
     Route: 065
  5. SUTENT [Suspect]
     Indication: PRODUCT USED FOR UNKNOWN INDICATION
     Dosage: 50 MG, QD
     Route: 065
  6. GLICLAZIDE [Suspect]
     Indication: PRODUCT USED FOR UNKNOWN INDICATION
     Dosage: UNK
     Route: 065
  7. JANUVIA [Suspect]
     Indication: PRODUCT USED FOR UNKNOWN INDICATION
     Dosage: UNK
     Route: 065
  8. LISINOPRIL [Concomitant]
  9. ASA [Concomitant]
  10. AVALIDE [Concomitant]
  11. CADUET [Concomitant]
     Dosage: UNK
  12. DIAMICRON [Concomitant]

REACTIONS (4)
  - Blood creatinine increased [Recovered/Resolved]
  - Metabolic acidosis [Recovered/Resolved]
  - Vomiting projectile [Recovered/Resolved]
  - Hypoglycaemia [Recovered/Resolved]
